FAERS Safety Report 13600595 (Version 6)
Quarter: 2018Q2

REPORT INFORMATION
  Report Type: Report from Study
  Country: JP (occurrence: JP)
  Receive Date: 20170601
  Receipt Date: 20180526
  Transmission Date: 20180711
  Serious: Yes (Other)
  Sender: FDA-Public Use
  Company Number: JP-AMGEN-JPNSP2016168290

PATIENT
  Age: 72 Year
  Sex: Male

DRUGS (32)
  1. CARFILZOMIB [Suspect]
     Active Substance: CARFILZOMIB
     Dosage: 19.7 MG/M2, UNK
     Route: 041
     Dates: start: 20161201, end: 20161201
  2. CARFILZOMIB [Suspect]
     Active Substance: CARFILZOMIB
     Dosage: 19.7 MG/M2, UNK
     Route: 041
     Dates: start: 20170119, end: 20170119
  3. DEXAMETHASONE. [Concomitant]
     Active Substance: DEXAMETHASONE
     Dosage: 19.8 MG, UNK
     Dates: start: 20161129, end: 20161129
  4. DEXAMETHASONE. [Concomitant]
     Active Substance: DEXAMETHASONE
     Dosage: 1.65 MG, UNK
     Dates: start: 20170112, end: 20170112
  5. DEXAMETHASONE. [Concomitant]
     Active Substance: DEXAMETHASONE
     Dosage: 4.95 MG, UNK
     Dates: start: 20170119, end: 20170119
  6. CARFILZOMIB [Suspect]
     Active Substance: CARFILZOMIB
     Dosage: 19.7 MG/M2, UNK
     Route: 041
     Dates: start: 20161129, end: 20161129
  7. DEXAMETHASONE. [Concomitant]
     Active Substance: DEXAMETHASONE
     Dosage: 19.8 MG, UNK
     Dates: start: 20161107, end: 20161107
  8. CARFILZOMIB [Suspect]
     Active Substance: CARFILZOMIB
     Dosage: 14.6 MG/M2, UNK
     Route: 041
     Dates: start: 20170131, end: 20170131
  9. REVLIMID [Concomitant]
     Active Substance: LENALIDOMIDE
     Dosage: UNK
     Dates: start: 20161031, end: 20161031
  10. REVLIMID [Concomitant]
     Active Substance: LENALIDOMIDE
     Dosage: UNK
     Dates: start: 20161107, end: 20161107
  11. DEXAMETHASONE. [Concomitant]
     Active Substance: DEXAMETHASONE
     Dosage: 19.8 MG, UNK
     Dates: start: 20170110, end: 20170110
  12. CARFILZOMIB [Suspect]
     Active Substance: CARFILZOMIB
     Indication: PLASMA CELL MYELOMA
     Dosage: 14.6 MG/M2, UNK
     Route: 041
     Dates: start: 20161031, end: 20161101
  13. CARFILZOMIB [Suspect]
     Active Substance: CARFILZOMIB
     Dosage: 19.7 MG/M2, UNK
     Route: 041
     Dates: start: 20161107, end: 20161108
  14. CARFILZOMIB [Suspect]
     Active Substance: CARFILZOMIB
     Dosage: 14.6 MG/M2, UNK
     Route: 041
     Dates: start: 20170126, end: 20170126
  15. REVLIMID [Concomitant]
     Active Substance: LENALIDOMIDE
     Dosage: UNK
     Dates: start: 20170119, end: 20170119
  16. REVLIMID [Concomitant]
     Active Substance: LENALIDOMIDE
     Dosage: UNK
     Dates: start: 20170131, end: 20170131
  17. DEXAMETHASONE. [Concomitant]
     Active Substance: DEXAMETHASONE
     Dosage: 1.65 MG, UNK
     Dates: start: 20161201, end: 20161201
  18. DEXAMETHASONE. [Concomitant]
     Active Substance: DEXAMETHASONE
     Dosage: 2.475 MG, UNK
     Dates: start: 20170124, end: 20170124
  19. CARFILZOMIB [Suspect]
     Active Substance: CARFILZOMIB
     Dosage: 19.7 MG/M2, UNK
     Route: 041
     Dates: start: 20161114, end: 20161115
  20. CARFILZOMIB [Suspect]
     Active Substance: CARFILZOMIB
     Dosage: 19.7 MG/M2, UNK
     Route: 041
     Dates: start: 20170112, end: 20170112
  21. DEXAMETHASONE. [Concomitant]
     Active Substance: DEXAMETHASONE
     Dosage: 19.8 MG, UNK
     Dates: start: 20161114, end: 20161114
  22. DEXAMETHASONE. [Concomitant]
     Active Substance: DEXAMETHASONE
     Dosage: 1.65 MG, UNK
     Dates: start: 20161115, end: 20161115
  23. DEXAMETHASONE. [Concomitant]
     Active Substance: DEXAMETHASONE
     Dosage: 1.65 MG, UNK
     Dates: start: 20170126, end: 20170126
  24. CARFILZOMIB [Suspect]
     Active Substance: CARFILZOMIB
     Dosage: 14.6 MG/M2, UNK
     Route: 041
     Dates: start: 20170124, end: 20170124
  25. REVLIMID [Concomitant]
     Active Substance: LENALIDOMIDE
     Dosage: UNK, (EVERY OTHER DAY)
     Dates: start: 20170110, end: 20170112
  26. DEXAMETHASONE. [Concomitant]
     Active Substance: DEXAMETHASONE
     Dosage: 19.8 MG, UNK
     Dates: start: 20161031, end: 20161031
  27. CARFILZOMIB [Suspect]
     Active Substance: CARFILZOMIB
     Dosage: 19.7 MG/M2, UNK
     Route: 041
     Dates: start: 20170110, end: 20170110
  28. DEXAMETHASONE. [Concomitant]
     Active Substance: DEXAMETHASONE
     Dosage: 1.65 MG, UNK
     Dates: start: 20161108, end: 20161108
  29. REVLIMID [Concomitant]
     Active Substance: LENALIDOMIDE
     Dosage: UNK, (EVERY OTHER DAY)
     Dates: start: 20161129, end: 20161201
  30. REVLIMID [Concomitant]
     Active Substance: LENALIDOMIDE
     Dosage: UNK, (EVERY OTHER DAY)
     Dates: start: 20170124, end: 20170126
  31. DEXAMETHASONE. [Concomitant]
     Active Substance: DEXAMETHASONE
     Dosage: 1.65 MG, UNK
     Dates: start: 20161101, end: 20161101
  32. DEXAMETHASONE. [Concomitant]
     Active Substance: DEXAMETHASONE
     Dosage: 0.825 MG, UNK
     Dates: start: 20170131, end: 20170131

REACTIONS (4)
  - Tachycardia [Recovered/Resolved]
  - Myocardial infarction [Recovered/Resolved]
  - Vascular pain [Recovered/Resolved]
  - Electrocardiogram QT prolonged [Recovered/Resolved]

NARRATIVE: CASE EVENT DATE: 20161115
